FAERS Safety Report 8612851-8 (Version None)
Quarter: 2012Q3

REPORT INFORMATION
  Report Type: 
  Country: None (occurrence: None)
  Receive Date: 20120822
  Receipt Date: 20111010
  Transmission Date: 20120928
  Serious: No
  Sender: FDA-Public Use
  Company Number: US-ASTRAZENECA-2011SE29755

PATIENT
  Age: 66 Year
  Sex: Female

DRUGS (2)
  1. ALBUTEROL [Concomitant]
  2. SYMBICORT [Suspect]
     Indication: ASTHMA
     Route: 055
     Dates: start: 20110301

REACTIONS (3)
  - ASTHMA [None]
  - DRUG DOSE OMISSION [None]
  - MALAISE [None]
